FAERS Safety Report 10509540 (Version 2)
Quarter: 2014Q4

REPORT INFORMATION
  Report Type: Report from Study
  Country: ES (occurrence: DK)
  Receive Date: 20141009
  Receipt Date: 20141120
  Transmission Date: 20150528
  Serious: Yes (Disabling)
  Sender: FDA-Public Use
  Company Number: DK-FRI-1000071229

PATIENT
  Age: 69 Year
  Sex: Male

DRUGS (15)
  1. HJERTEMAGNYL [Concomitant]
     Active Substance: ASPIRIN\MAGNESIUM OXIDE
     Indication: THROMBOSIS PROPHYLAXIS
     Dosage: 1 DOSAGE FORM
     Dates: start: 20140605
  2. ATORVASTATIN [Concomitant]
     Active Substance: ATORVASTATIN
     Dosage: 1 DOSAGE FORM
     Dates: start: 20131007
  3. DIURAL [Concomitant]
     Active Substance: FUROSEMIDE
     Indication: POLYURIA
     Dosage: 1 DOSAGE FORM
     Dates: start: 20140123
  4. LANSOPRAZOL STADA [Concomitant]
     Indication: ULCER
     Dosage: 1 DOSAGE FORM
     Dates: start: 20140605
  5. METOPROLOLSUCCINAT HEXAL [Concomitant]
     Active Substance: METOPROLOL SUCCINATE
     Indication: CARDIOVASCULAR EVENT PROPHYLAXIS
     Dosage: 2 DOSAGE FORMS
     Dates: start: 20131003
  6. GLYCERYL TRINITRATE [Concomitant]
     Active Substance: NITROGLYCERIN
     Indication: CHEST PAIN
     Dosage: 1 SPRAY MAX 6 TIMES A DAY
     Dates: start: 20131003
  7. KALEORID [Concomitant]
     Active Substance: POTASSIUM CHLORIDE
     Indication: HYPOKALAEMIA
     Dosage: 4 DOSAGE FORMS
     Dates: start: 20140123
  8. SYMBICORT [Concomitant]
     Active Substance: BUDESONIDE\FORMOTEROL FUMARATE DIHYDRATE
     Indication: LUNG DISORDER
     Dates: start: 20140508, end: 20140731
  9. SYMBICORT [Concomitant]
     Active Substance: BUDESONIDE\FORMOTEROL FUMARATE DIHYDRATE
     Dosage: 1-0-1-0
     Dates: start: 20140901
  10. JERN C [Concomitant]
     Indication: IRON DEFICIENCY
     Dosage: 1 DOSAGE FORM
     Dates: start: 20131121
  11. PINEX [Concomitant]
     Active Substance: ACETAMINOPHEN
     Indication: PAIN
     Dosage: 2 TABLETS MAX 4 TIMES A DAY WITH AT LEAST 6 HOURS INTERVAL
     Dates: start: 20131209
  12. BRICANYL [Concomitant]
     Active Substance: TERBUTALINE SULFATE
     Indication: BRONCHOSPASM
     Dosage: 1 INHALATION MAX 8 TIMES A DAY
     Dates: start: 20140206
  13. ACLIDINIUM [Suspect]
     Active Substance: ACLIDINIUM BROMIDE
     Indication: CHRONIC OBSTRUCTIVE PULMONARY DISEASE
     Dosage: 644 MCG
     Route: 055
     Dates: start: 20140206, end: 20140715
  14. COLCHICIN [Concomitant]
     Active Substance: COLCHICINE
     Indication: GOUTY ARTHRITIS
     Dosage: 1 DOSAGE FORM
     Dates: start: 20140123
  15. XARELTO [Concomitant]
     Active Substance: RIVAROXABAN
     Indication: THROMBOSIS PROPHYLAXIS
     Dosage: 1 DOSAGE FORM
     Dates: start: 20140113

REACTIONS (3)
  - Pain in extremity [Recovering/Resolving]
  - Musculoskeletal disorder [Recovering/Resolving]
  - Dyspnoea [Recovering/Resolving]

NARRATIVE: CASE EVENT DATE: 20140715
